FAERS Safety Report 15398261 (Version 1)
Quarter: 2018Q3

REPORT INFORMATION
  Report Type: Spontaneous
  Country: US (occurrence: US)
  Receive Date: 20180918
  Receipt Date: 20180918
  Transmission Date: 20181010
  Serious: Yes (Other)
  Sender: FDA-Public Use
  Company Number: US-SANIK-2018SA257921AA

PATIENT

DRUGS (1)
  1. ALLEGRA ALLERGY [Suspect]
     Active Substance: FEXOFENADINE HYDROCHLORIDE

REACTIONS (6)
  - Hypersensitivity [Unknown]
  - Seizure [Unknown]
  - Sneezing [Unknown]
  - Headache [Unknown]
  - Cough [Unknown]
  - Drug ineffective [Unknown]
